FAERS Safety Report 9275459 (Version 1)
Quarter: 2013Q2

REPORT INFORMATION
  Report Type: Spontaneous
  Country: US (occurrence: None)
  Receive Date: 20130501
  Receipt Date: 20130501
  Transmission Date: 20140414
  Serious: No
  Sender: FDA-Public Use
  Company Number: None

PATIENT
  Sex: Female
  Weight: 60.33 kg

DRUGS (1)
  1. LAMOTRIGINE [Suspect]
     Indication: DEPRESSION
     Dosage: 2 TABS 12.5 - 25 MG

REACTIONS (5)
  - Varicose vein [None]
  - Tinnitus [None]
  - Skin atrophy [None]
  - Balance disorder [None]
  - Hallucination [None]
